FAERS Safety Report 9008021 (Version 4)
Quarter: 2013Q2

REPORT INFORMATION
  Report Type: Spontaneous
  Country: US (occurrence: US)
  Receive Date: 20130111
  Receipt Date: 20130624
  Transmission Date: 20140414
  Serious: No
  Sender: FDA-Public Use
  Company Number: US-BAYER-2013-003264

PATIENT
  Age: 23 Year
  Sex: Female
  Weight: 60.77 kg

DRUGS (4)
  1. MIRENA [Suspect]
     Dosage: 20 MCG/24HR, CONT
     Route: 015
     Dates: start: 201011, end: 201205
  2. TOCOPHEROL [Concomitant]
     Dosage: 50 MG, UNK
  3. TYLENOL 1 [Concomitant]
  4. VITAREL [Concomitant]

REACTIONS (6)
  - Pregnancy with contraceptive device [None]
  - Drug ineffective [None]
  - Device expulsion [None]
  - Nausea [None]
  - Headache [None]
  - Premature labour [None]
